FAERS Safety Report 7609558-2 (Version None)
Quarter: 2011Q3

REPORT INFORMATION
  Report Type: 
  Country: None (occurrence: None)
  Receive Date: 20110714
  Receipt Date: 20110628
  Transmission Date: 20111222
  Serious: Yes (Death, Hospitalization)
  Sender: FDA-Public Use
  Company Number: US-PFIZER INC-US-WYE-H07561409

PATIENT
  Sex: Male

DRUGS (6)
  1. PAROXETINE HCL [Suspect]
     Dosage: UNK
     Route: 048
  2. ACETAMINOPHEN AND HYDROCODONE BITARTRATE [Suspect]
     Dosage: UNK
     Route: 048
  3. DIPHENHYDRAMINE HCL [Suspect]
     Dosage: UNK
     Route: 048
  4. PROPOXYPHENE HCL AND ACETAMINOPHEN [Suspect]
     Route: 048
  5. DEXTROMETHORPHAN HYDROBROMIDE [Suspect]
     Dosage: UNK
     Route: 048
  6. ETHANOL [Suspect]
     Dosage: UNK
     Route: 048

REACTIONS (1)
  - COMPLETED SUICIDE [None]
